FAERS Safety Report 13935486 (Version 1)
Quarter: 2017Q3

REPORT INFORMATION
  Report Type: Spontaneous
  Country: US (occurrence: US)
  Receive Date: 20170902
  Receipt Date: 20170902
  Transmission Date: 20171127
  Serious: Yes (Other)
  Sender: FDA-Public Use
  Company Number: None

PATIENT
  Age: 64 Year
  Sex: Female
  Weight: 76.5 kg

DRUGS (4)
  1. DILITAZIEM [Concomitant]
  2. DILITIAZIEM HCL ER [Suspect]
     Active Substance: DILTIAZEM HYDROCHLORIDE
     Indication: HEPATITIS B
     Dosage: ?          QUANTITY:30 TABLET(S);?
     Route: 048
     Dates: start: 20170827
  3. METFORMIN [Concomitant]
     Active Substance: METFORMIN HYDROCHLORIDE
  4. CRESTOR [Concomitant]
     Active Substance: ROSUVASTATIN CALCIUM

REACTIONS (3)
  - Cardiac flutter [None]
  - Angioedema [None]
  - Fatigue [None]

NARRATIVE: CASE EVENT DATE: 20170902
